FAERS Safety Report 5526103-6 (Version None)
Quarter: 2007Q4

REPORT INFORMATION
  Report Type: 
  Country: None (occurrence: None)
  Receive Date: 20071120
  Receipt Date: 20071106
  Transmission Date: 20080405
  Serious: Yes (Hospitalization)
  Sender: FDA-Public Use
  Company Number: 163743ISR

PATIENT
  Age: 59 Year
  Sex: Male

DRUGS (3)
  1. TRAZODONE HCL [Suspect]
     Dosage: (100 MG) ORAL
     Route: 048
     Dates: start: 20061018
  2. ZUCLOPENTHIXOL [Suspect]
     Indication: PSYCHOTIC DISORDER
     Dosage: (100 MG) INTRAMUSCULAR, (200 MG, 1 IN 2 WK) INTRAMUSCULAR, (50 MG) INTRAMUSCULAR
     Route: 030
     Dates: start: 20061018, end: 20061123
  3. PIMOZIDE [Suspect]
     Dates: start: 20061124

REACTIONS (4)
  - CONSTIPATION [None]
  - EXTRAPYRAMIDAL DISORDER [None]
  - NEUROLEPTIC MALIGNANT SYNDROME [None]
  - URINARY RETENTION [None]
